FAERS Safety Report 9130312 (Version 1)
Quarter: 2013Q1

REPORT INFORMATION
  Report Type: Spontaneous
  Country: US (occurrence: US)
  Receive Date: 20130228
  Receipt Date: 20130228
  Transmission Date: 20140127
  Serious: Yes (Hospitalization, Other)
  Sender: FDA-Public Use
  Company Number: US-SANOFI-AVENTIS-2013SA016989

PATIENT
  Age: 74 Year
  Sex: Male

DRUGS (7)
  1. PLAVIX [Suspect]
     Indication: STENT PLACEMENT
  2. ASPIRIN [Concomitant]
  3. LISINOPRIL [Concomitant]
  4. SIMVASTATIN [Concomitant]
  5. LUTEIN [Concomitant]
  6. OCUVITE [Concomitant]
  7. CENTRUM SILVER [Concomitant]

REACTIONS (3)
  - Vascular occlusion [Unknown]
  - Cataract operation [Unknown]
  - Haemorrhage [Not Recovered/Not Resolved]
